FAERS Safety Report 16298516 (Version 1)
Quarter: 2019Q2

REPORT INFORMATION
  Report Type: Report from Study
  Country: None (occurrence: US)
  Receive Date: 20190510
  Receipt Date: 20190510
  Transmission Date: 20190711
  Serious: Yes (Disabling)
  Sender: FDA-Public Use
  Company Number: US-ABBVIE-19S-163-2770654-00

PATIENT
  Sex: Male

DRUGS (1)
  1. ANDROGEL [Suspect]
     Active Substance: TESTOSTERONE
     Indication: PRODUCT USED FOR UNKNOWN INDICATION
     Route: 061

REACTIONS (12)
  - Disturbance in social behaviour [Unknown]
  - Anosognosia [Unknown]
  - Speech disorder [Unknown]
  - Cognitive disorder [Unknown]
  - Obesity [Unknown]
  - Disturbance in attention [Unknown]
  - Disability [Unknown]
  - Loss of personal independence in daily activities [Unknown]
  - Hypogonadism [Unknown]
  - Cognitive linguistic deficit [Unknown]
  - Learning disability [Unknown]
  - Judgement impaired [Unknown]
